FAERS Safety Report 15596763 (Version 1)
Quarter: 2018Q4

REPORT INFORMATION
  Report Type: Spontaneous
  Country: NL (occurrence: NL)
  Receive Date: 20181108
  Receipt Date: 20181108
  Transmission Date: 20190205
  Serious: Yes (Other)
  Sender: FDA-Public Use
  Company Number: NL-ASTELLAS-2018US047552

PATIENT
  Age: 5 Decade
  Sex: Female

DRUGS (2)
  1. PROGRAFT [Suspect]
     Active Substance: TACROLIMUS
     Indication: TRANSPLANT
  2. PROGRAFT [Suspect]
     Active Substance: TACROLIMUS
     Indication: LIVER TRANSPLANT
     Dosage: BETWEEN 8-10 MG, ONCE DAILY
     Route: 065
     Dates: start: 1999

REACTIONS (7)
  - Tinnitus [Not Recovered/Not Resolved]
  - Transient ischaemic attack [Unknown]
  - Basal cell carcinoma [Unknown]
  - Visual impairment [Not Recovered/Not Resolved]
  - Vasoconstriction [Not Recovered/Not Resolved]
  - Collagen disorder [Not Recovered/Not Resolved]
  - Deafness [Not Recovered/Not Resolved]

NARRATIVE: CASE EVENT DATE: 2010
